FAERS Safety Report 4379474-0 (Version None)
Quarter: 2004Q2

REPORT INFORMATION
  Report Type: 
  Country: None (occurrence: None)
  Receive Date: 20040601
  Receipt Date: 20040402
  Transmission Date: 20050107
  Serious: No
  Sender: FDA-Public Use
  Company Number: WAES 0404USA00170

PATIENT
  Age: 71 Year
  Sex: Female

DRUGS (7)
  1. ZETIA [Suspect]
     Indication: BLOOD CHOLESTEROL INCREASED
     Dosage: 10 MG/PO
     Route: 048
     Dates: start: 20021228, end: 20031006
  2. CIPROFLOXACIN [Concomitant]
  3. FUROSEMIDE [Concomitant]
  4. MINERAL TAB [Concomitant]
  5. SILIBININ [Concomitant]
  6. UBIDECARENONE [Concomitant]
  7. VITAMIN E [Concomitant]

REACTIONS (4)
  - BLOOD CHOLESTEROL INCREASED [None]
  - DIZZINESS [None]
  - MUSCLE CONTRACTIONS INVOLUNTARY [None]
  - URINARY TRACT INFECTION [None]
